FAERS Safety Report 11928350 (Version 1)
Quarter: 2016Q1

REPORT INFORMATION
  Report Type: Report from Study
  Country: JP (occurrence: JP)
  Receive Date: 20160119
  Receipt Date: 20160119
  Transmission Date: 20160526
  Serious: Yes (Death, Life-Threatening, Hospitalization)
  Sender: FDA-Public Use
  Company Number: JP-PFIZER INC-2015160262

PATIENT
  Age: 74 Year
  Sex: Male
  Weight: 39.5 kg

DRUGS (10)
  1. XELJANZ [Suspect]
     Active Substance: TOFACITINIB CITRATE
     Indication: RHEUMATOID ARTHRITIS
     Dosage: 5 MG, 2X/DAY
     Route: 048
     Dates: start: 20141211, end: 20150415
  2. MYSLEE [Concomitant]
     Active Substance: ZOLPIDEM TARTRATE
     Route: 048
  3. EPERINAL [Concomitant]
     Route: 048
  4. LOXONIN [Concomitant]
     Active Substance: LOXOPROFEN SODIUM
     Dosage: UNK
     Route: 048
  5. BAYASPIRIN [Concomitant]
     Active Substance: ASPIRIN
     Route: 048
  6. PLAVIX [Concomitant]
     Active Substance: CLOPIDOGREL BISULFATE
     Route: 048
  7. HERBESSER [Concomitant]
     Active Substance: DILTIAZEM HYDROCHLORIDE
     Route: 048
  8. TAKEPRON [Concomitant]
     Active Substance: LANSOPRAZOLE
     Route: 048
  9. ELUGLILU [Concomitant]
     Route: 048
  10. JANUVIA [Concomitant]
     Active Substance: SITAGLIPTIN PHOSPHATE
     Route: 048

REACTIONS (5)
  - Rectal adenocarcinoma [Recovered/Resolved]
  - Pneumonia [Recovering/Resolving]
  - Bronchitis [Recovered/Resolved]
  - Pneumonia [Recovering/Resolving]
  - Pneumonia [Fatal]

NARRATIVE: CASE EVENT DATE: 20150415
